FAERS Safety Report 5316181-1 (Version None)
Quarter: 2007Q2

REPORT INFORMATION
  Report Type: 
  Country: None (occurrence: None)
  Receive Date: 20070503
  Receipt Date: 20070424
  Transmission Date: 20071010
  Serious: Yes (Disabling)
  Sender: FDA-Public Use
  Company Number: ES-PFIZER INC-2007032572

PATIENT
  Age: 57 Year
  Sex: Male
  Weight: 90 kg

DRUGS (4)
  1. ALDACTONE [Suspect]
     Indication: OEDEMA
     Route: 048
     Dates: start: 20070112, end: 20070131
  2. ALLOPURINOL [Concomitant]
     Indication: GOUT
     Dosage: DAILY DOSE:100MG-FREQ:DAILY
  3. ATARAX [Concomitant]
     Indication: PRURITUS
     Dosage: DAILY DOSE:25MG-FREQ:DAILY
  4. IBUPROFEN [Concomitant]
     Indication: GOUT
     Dosage: DAILY DOSE:600MG-FREQ:DAILY

REACTIONS (2)
  - HAEMATURIA [None]
  - VASCULITIS [None]
